FAERS Safety Report 16555361 (Version 1)
Quarter: 2019Q3

REPORT INFORMATION
  Report Type: Spontaneous
  Country: DE (occurrence: DE)
  Receive Date: 20190710
  Receipt Date: 20190710
  Transmission Date: 20191004
  Serious: Yes (Hospitalization)
  Sender: FDA-Public Use
  Company Number: DE-TEVA-2019-DE-1073783

PATIENT
  Age: 78 Year
  Sex: Male
  Weight: 147 kg

DRUGS (22)
  1. PREGABALIN. [Suspect]
     Active Substance: PREGABALIN
     Dosage: 25 MG, 0-0-1-0
  2. SALBUTAMOL [Concomitant]
     Active Substance: ALBUTEROL
     Route: 055
  3. COLECALCIFEROL [Concomitant]
     Active Substance: CHOLECALCIFEROL
     Dosage: 20000 IU, DIALYSIS MONDAY
  4. TAMSULOSIN [Concomitant]
     Active Substance: TAMSULOSIN
     Dosage: 0.4 MG, 1-0-0-0
  5. ACETYLSALICYLS?URE [Concomitant]
     Active Substance: ASPIRIN
     Dosage: 100 MG, 0-1-0-0
  6. HUMALOG [Concomitant]
     Active Substance: INSULIN LISPRO
     Dosage: SCHEME
     Route: 058
  7. CALCIUM [Concomitant]
     Active Substance: CALCIUM
     Dosage: 950 MG, 1-1-1-1
  8. PREGABALIN. [Suspect]
     Active Substance: PREGABALIN
     Dosage: 50 MG, 1-0-0-0
  9. TRAMADOL. [Suspect]
     Active Substance: TRAMADOL
     Dosage: 50 MG, 1-0-1-0
  10. LEVODOPA/BENSERAZID [Suspect]
     Active Substance: BENSERAZIDE\LEVODOPA
     Dosage: 100|25 MG, 1-0-0-0
  11. PANTOPRAZOL [Concomitant]
     Active Substance: PANTOPRAZOLE SODIUM
     Dosage: 40 MG, 1-0-1-0
  12. TORASEMID [Suspect]
     Active Substance: TORSEMIDE
     Dosage: 200 MG, 1 / 2-0-0-0 HD-FREE DAYS
  13. SIMVASTATIN. [Concomitant]
     Active Substance: SIMVASTATIN
     Dosage: 20 MG, 0-0-1-0
  14. MACROGOL [Concomitant]
     Active Substance: POLYETHYLENE GLYCOLS
     Dosage: 1-1-0-0
  15. METOPROLOL. [Concomitant]
     Active Substance: METOPROLOL
     Dosage: 95 MG, 0-0-0.5-0
  16. IPRATROPIUM BROMIDE. [Concomitant]
     Active Substance: IPRATROPIUM BROMIDE
     Dosage: 250 ?G/ML
     Route: 055
  17. LANTUS [Concomitant]
     Active Substance: INSULIN GLARGINE
     Dosage: 0-0-0-45
     Route: 058
  18. CLOPIDOGREL [Concomitant]
     Active Substance: CLOPIDOGREL BISULFATE
     Dosage: 75 MG, 1-0-0-0
  19. FERRLECIT 62,5MG [Concomitant]
     Dosage: DIALYSIS ONCE A MONTH
  20. METAMIZOL [Concomitant]
     Active Substance: METAMIZOLE SODIUM
     Dosage: 15-0-15-0, DROPS
  21. LEVOTHYROXIN [Concomitant]
     Active Substance: LEVOTHYROXINE
     Dosage: 50 ?G, 1-0-0-0
  22. VALSARTAN. [Concomitant]
     Active Substance: VALSARTAN
     Dosage: 80 MG, 1-0-0-0 HD-FREE DAYS

REACTIONS (2)
  - Confusional state [Unknown]
  - Disturbance in attention [Unknown]
